FAERS Safety Report 13168323 (Version 2)
Quarter: 2017Q2

REPORT INFORMATION
  Report Type: Report from Study
  Country: US (occurrence: US)
  Receive Date: 20170131
  Receipt Date: 20170621
  Transmission Date: 20170830
  Serious: Yes (Hospitalization, Other)
  Sender: FDA-Public Use
  Company Number: PHEH2017US002981

PATIENT
  Sex: Female

DRUGS (1)
  1. GILENYA [Suspect]
     Active Substance: FINGOLIMOD HYDROCHLORIDE
     Indication: MULTIPLE SCLEROSIS
     Dosage: 0.5 MG, QD
     Route: 048
     Dates: start: 20140715

REACTIONS (7)
  - Central nervous system lymphoma [Unknown]
  - Psychiatric symptom [Unknown]
  - Hypertension [Unknown]
  - Anxiety [Unknown]
  - Hypoaesthesia [Unknown]
  - Heart rate increased [Unknown]
  - Headache [Unknown]
